FAERS Safety Report 6306524-4 (Version None)
Quarter: 2009Q3

REPORT INFORMATION
  Report Type: 
  Country: None (occurrence: None)
  Receive Date: 20090812
  Receipt Date: 20090731
  Transmission Date: 20100115
  Serious: Yes (Hospitalization)
  Sender: FDA-Public Use
  Company Number: GB-WATSON-2009-06193

PATIENT
  Age: 24 Year
  Sex: Male

DRUGS (2)
  1. CHLORDIAZEPOXIDE HYDROCHLORIDE (WATSON LABORATORIES) [Suspect]
     Indication: ANXIETY
     Dosage: 100 MG, TOTAL
     Route: 048
  2. CLIDINIUM BROMIDE [Suspect]
     Indication: ACCIDENTAL OVERDOSE
     Dosage: 50 MG, TOTAL
     Route: 048

REACTIONS (1)
  - SINUS TACHYCARDIA [None]
